FAERS Safety Report 12816249 (Version 2)
Quarter: 2016Q4

REPORT INFORMATION
  Report Type: Report from Study
  Country: CO (occurrence: CO)
  Receive Date: 20161005
  Receipt Date: 20161205
  Transmission Date: 20170207
  Serious: Yes (Death, Hospitalization)
  Sender: FDA-Public Use
  Company Number: CO-B.I. PHARMACEUTICALS,INC./RIDGEFIELD-2016-BI-19658BI

PATIENT
  Age: 80 Year
  Sex: Male
  Weight: 51 kg

DRUGS (2)
  1. BLINDED BI 1356 [Suspect]
     Active Substance: LINAGLIPTIN
     Indication: TYPE 2 DIABETES MELLITUS
     Route: 048
     Dates: start: 20111205, end: 20160129
  2. BLINDED BI 1356 [Suspect]
     Active Substance: LINAGLIPTIN
     Route: 048
     Dates: end: 20160817

REACTIONS (6)
  - Soft tissue infection [Fatal]
  - Pneumonia bacterial [Recovered/Resolved]
  - Gastrointestinal haemorrhage [Fatal]
  - Necrosis [Not Recovered/Not Resolved]
  - Cellulitis [Recovered/Resolved]
  - Skin ulcer [Not Recovered/Not Resolved]

NARRATIVE: CASE EVENT DATE: 20160130
